FAERS Safety Report 16863517 (Version 3)
Quarter: 2020Q4

REPORT INFORMATION
  Report Type: Spontaneous
  Country: US (occurrence: US)
  Receive Date: 20190927
  Receipt Date: 20201011
  Transmission Date: 20210113
  Serious: Yes (Other)
  Sender: FDA-Public Use
  Company Number: US-TEVA-2019-US-1113721

PATIENT
  Sex: Female

DRUGS (12)
  1. CLOTRIM/BETA [Concomitant]
  2. TRAZODONE [Concomitant]
     Active Substance: TRAZODONE HYDROCHLORIDE
  3. CALCIFEROL DRO [Concomitant]
  4. CALCIUM 600 [Concomitant]
     Active Substance: CALCIUM
  5. COPAXONE [Suspect]
     Active Substance: GLATIRAMER ACETATE
     Indication: MULTIPLE SCLEROSIS
     Route: 058
     Dates: start: 20170816
  6. AASPIRIN-81 [Concomitant]
  7. ESTRADIOL. [Concomitant]
     Active Substance: ESTRADIOL
  8. GLIMEPIRIDE. [Concomitant]
     Active Substance: GLIMEPIRIDE
  9. METFORMIN [Concomitant]
     Active Substance: METFORMIN HYDROCHLORIDE
  10. BENZONATE [Concomitant]
     Active Substance: BENZONATATE
  11. LISINOPRIL. [Concomitant]
     Active Substance: LISINOPRIL
  12. MULTIVIT [Concomitant]
     Active Substance: VITAMINS
     Route: 065

REACTIONS (1)
  - Chronic myeloid leukaemia [Unknown]
